FAERS Safety Report 8448944-8 (Version None)
Quarter: 2012Q2

REPORT INFORMATION
  Report Type: 
  Country: None (occurrence: None)
  Receive Date: 20120619
  Receipt Date: 20120608
  Transmission Date: 20120825
  Serious: Yes (Hospitalization)
  Sender: FDA-Public Use
  Company Number: GR-GLAXOSMITHKLINE-B0808885A

PATIENT
  Sex: Male
  Weight: 88 kg

DRUGS (2)
  1. ARIXTRA [Concomitant]
     Indication: DEEP VEIN THROMBOSIS
     Dosage: 7.5MG PER DAY
     Route: 058
     Dates: start: 20120516
  2. PAZOPANIB [Suspect]
     Indication: SARCOMA
     Route: 048

REACTIONS (1)
  - RESPIRATORY DISTRESS [None]
